FAERS Safety Report 4673555-X (Version None)
Quarter: 2005Q2

REPORT INFORMATION
  Report Type: 
  Country: None (occurrence: None)
  Receive Date: 20050525
  Receipt Date: 20050517
  Transmission Date: 20051028
  Serious: Yes (Other)
  Sender: FDA-Public Use
  Company Number: PHNU2005DE01974

PATIENT
  Age: 65 Year
  Sex: Male

DRUGS (3)
  1. ZOMETA [Suspect]
     Indication: MULTIPLE MYELOMA
     Dosage: 4 MG, ONCE/SINGLE
     Dates: start: 20050405, end: 20050405
  2. ZOMETA [Suspect]
     Dosage: 4 MG, ONCE/SINGLE
     Dates: start: 20050503, end: 20050503
  3. ZOMETA [Suspect]
     Dosage: 4 MG, QMO
     Dates: start: 20040924

REACTIONS (2)
  - EXANTHEM [None]
  - URTICARIA GENERALISED [None]
